FAERS Safety Report 23754592 (Version 1)
Quarter: 2024Q2

REPORT INFORMATION
  Report Type: Spontaneous
  Country: ES (occurrence: ES)
  Receive Date: 20240418
  Receipt Date: 20240418
  Transmission Date: 20240716
  Serious: Yes (Death, Hospitalization, Congenital Anomaly, Other)
  Sender: FDA-Public Use
  Company Number: ES-BAXTER-2022BAX019235

PATIENT
  Age: 70 Year
  Sex: Male

DRUGS (15)
  1. DOXORUBICIN [Suspect]
     Active Substance: DOXORUBICIN
     Indication: Mantle cell lymphoma stage IV
     Dosage: UNK UNK, CYCLICAL  (1ST LINE CHEMOTHERAPY, R-CHOP REGIMEN, 6 CYCLES)
     Route: 065
  2. BENDAMUSTINE HYDROCHLORIDE [Suspect]
     Active Substance: BENDAMUSTINE HYDROCHLORIDE
     Indication: Malignant neoplasm progression
     Dosage: UNK, CYCLICAL RESCUE TREATMENT WITH POLYCHEMOTHERAPY, R-BAC REGIMEN), FREQUENCY TIME : CYCLICAL)
     Route: 042
  3. BENDAMUSTINE HYDROCHLORIDE [Suspect]
     Active Substance: BENDAMUSTINE HYDROCHLORIDE
     Indication: Mantle cell lymphoma
  4. CYTARABINE [Suspect]
     Active Substance: CYTARABINE
     Indication: Disease progression
     Dosage: UNK, CYCLICAL RESCUE TREATMENT WITH POLYCHEMOTHERAPY, R-BAC REGIMEN
     Route: 065
  5. CYTARABINE [Suspect]
     Active Substance: CYTARABINE
     Indication: Mantle cell lymphoma stage IV
  6. CYTARABINE [Suspect]
     Active Substance: CYTARABINE
     Indication: Mantle cell lymphoma
  7. RITUXIMAB [Suspect]
     Active Substance: RITUXIMAB
     Indication: Disease progression
     Dosage: UNK, RESCUE TREATMENT WITH POLYCHEMOTHERAPY, R-BAC REGIMEN
     Route: 065
     Dates: start: 2022
  8. RITUXIMAB [Suspect]
     Active Substance: RITUXIMAB
     Indication: Mantle cell lymphoma stage IV
     Dosage: UNK (1ST LINE CHEMOTHERAPY, R-CHOP REGIMEN, 6 CYCLES)
     Route: 065
  9. RITUXIMAB [Suspect]
     Active Substance: RITUXIMAB
     Indication: Malignant neoplasm progression
  10. RITUXIMAB [Suspect]
     Active Substance: RITUXIMAB
     Indication: Mantle cell lymphoma
  11. CYCLOPHOSPHAMIDE [Suspect]
     Active Substance: CYCLOPHOSPHAMIDE
     Indication: Mantle cell lymphoma stage IV
     Dosage: UNK, CYCLICAL  (1ST LINE CHEMOTHERAPY, R-CHOP REGIMEN, 6 CYCLES)
     Route: 065
  12. VINCRISTINE [Suspect]
     Active Substance: VINCRISTINE
     Indication: Mantle cell lymphoma stage IV
     Dosage: UNK, CYCLICAL  (1ST LINE CHEMOTHERAPY, R-CHOP REGIMEN, 6 CYCLES)
     Route: 065
  13. PREDNISOLONE [Suspect]
     Active Substance: PREDNISOLONE
     Indication: Mantle cell lymphoma stage IV
     Dosage: UNK, CYCLICAL (1ST LINE CHEMOTHERAPY, R-CHOP REGIMEN, 6 CYCLES)
     Route: 065
  14. PREDNISOLONE [Suspect]
     Active Substance: PREDNISOLONE
     Dosage: UNK
     Route: 065
  15. IMBRUVICA [Suspect]
     Active Substance: IBRUTINIB
     Indication: Mantle cell lymphoma
     Dosage: UNK
     Route: 048

REACTIONS (17)
  - General physical health deterioration [Fatal]
  - Pleural effusion [Fatal]
  - Disease progression [Fatal]
  - Malignant neoplasm progression [Fatal]
  - Pneumonia [Fatal]
  - Mantle cell lymphoma [Fatal]
  - Neuroendocrine carcinoma of the skin [Fatal]
  - Neoplasm progression [Fatal]
  - Pathogen resistance [Recovered/Resolved]
  - Pneumonia pseudomonal [Recovered/Resolved]
  - Urethral obstruction [Unknown]
  - Hydronephrosis [Unknown]
  - Cardiac failure [Unknown]
  - Nodule [Unknown]
  - Congenital aplasia [Unknown]
  - Back pain [Unknown]
  - Scrotal oedema [Not Recovered/Not Resolved]
